FAERS Safety Report 7023305-7 (Version None)
Quarter: 2010Q3

REPORT INFORMATION
  Report Type: 
  Country: None (occurrence: None)
  Receive Date: 20100930
  Receipt Date: 20100920
  Transmission Date: 20110219
  Serious: Yes (Hospitalization)
  Sender: FDA-Public Use
  Company Number: DE-PFIZER INC-2010081039

PATIENT
  Age: 77 Year
  Sex: Female

DRUGS (10)
  1. AMLODIPINE BESYLATE [Suspect]
     Indication: HYPERTENSION
     Dosage: 5 MG, 1X/DAY
     Route: 065
  2. RAMIPRIL [Suspect]
     Indication: HYPERTENSION
     Dosage: 5 MG, 2X/DAY
  3. BISOPROLOL FUMARATE [Suspect]
     Indication: HYPERTENSION
     Dosage: 5 MG, 1X/DAY
  4. PROTHIPENDYL [Suspect]
     Indication: SLEEP DISORDER
     Dosage: 80 MG, 1X/DAY
     Route: 065
  5. PROTHIPENDYL [Suspect]
     Indication: INITIAL INSOMNIA
  6. HYDROCHLOROTHIAZIDE [Suspect]
     Indication: HYPERTENSION
     Dosage: 12.5 MG, DAILY
  7. BAYOTENSIN AKUT [Suspect]
     Indication: HYPERTENSION
     Dosage: 5 MG, UNK
     Route: 065
  8. OLANZAPINE [Concomitant]
     Dosage: 5 MG, DAILY
  9. VALPROIC ACID [Concomitant]
     Dosage: 900 MG, DAILY
  10. PREGABALIN [Concomitant]
     Dosage: 150 MG, DAILY

REACTIONS (1)
  - NON-DIPPING [None]
